FAERS Safety Report 12020249 (Version 1)
Quarter: 2016Q1

REPORT INFORMATION
  Report Type: Spontaneous
  Country: US (occurrence: US)
  Receive Date: 20160206
  Receipt Date: 20160206
  Transmission Date: 20160526
  Serious: Yes (Hospitalization)
  Sender: FDA-Public Use
  Company Number: US-ACCORD-037455

PATIENT
  Age: 67 Year
  Sex: Female

DRUGS (2)
  1. ONDANSETRON [Suspect]
     Active Substance: ONDANSETRON
     Indication: NAUSEA
     Route: 048
  2. CAFFEINE/CODEINE PHOSPHATE/PARACETAMOL [Concomitant]
     Indication: PAIN IN EXTREMITY
     Dosage: 4?TABLETS?OVERNIGHT

REACTIONS (1)
  - Toxic encephalopathy [Recovered/Resolved]
